FAERS Safety Report 5288189-6 (Version None)
Quarter: 2007Q1

REPORT INFORMATION
  Report Type: 
  Country: None (occurrence: None)
  Receive Date: 20070116
  Receipt Date: 20060718
  Transmission Date: 20070707
  Serious: Yes (Hospitalization)
  Sender: FDA-Public Use
  Company Number: FEI2006-1014

PATIENT
  Age: 30 Year
  Sex: Female
  Weight: 113.3993 kg

DRUGS (2)
  1. INTRAUTERINE COPPER CONTRACEPTIVE [Suspect]
     Indication: CONTRACEPTION
     Dosage: INTRA-UTERINE
     Route: 015
     Dates: start: 20040401, end: 20060713
  2. ASPIRIN [Concomitant]

REACTIONS (4)
  - AMENORRHOEA [None]
  - IUCD COMPLICATION [None]
  - IUD MIGRATION [None]
  - MEDICAL DEVICE PAIN [None]
